FAERS Safety Report 7098140-4 (Version None)
Quarter: 2010Q4

REPORT INFORMATION
  Report Type: 
  Country: None (occurrence: None)
  Receive Date: 20101104
  Receipt Date: 20101025
  Transmission Date: 20110411
  Serious: Yes (Other)
  Sender: FDA-Public Use
  Company Number: 2010EU005683

PATIENT
  Age: 33 Year
  Sex: Female

DRUGS (1)
  1. PROTOPIC [Suspect]
     Indication: VULVAR DYSPLASIA

REACTIONS (6)
  - DYSPAREUNIA [None]
  - LANGERHANS' CELL HISTIOCYTOSIS [None]
  - MALIGNANT NEOPLASM PROGRESSION [None]
  - METASTASES TO LYMPH NODES [None]
  - OFF LABEL USE [None]
  - VULVAL CANCER RECURRENT [None]
